FAERS Safety Report 9871303 (Version 1)
Quarter: 2014Q1

REPORT INFORMATION
  Report Type: Spontaneous
  Country: US (occurrence: US)
  Receive Date: 20140205
  Receipt Date: 20140205
  Transmission Date: 20141002
  Serious: Yes (Disabling, Other)
  Sender: FDA-Public Use
  Company Number: US-ACTAVIS-2014-01326

PATIENT
  Age: 69 Year
  Sex: Female

DRUGS (3)
  1. ROPINIROLE HYDROCHLORIDE [Suspect]
     Indication: RESTLESS LEGS SYNDROME
     Dosage: PRESCRIBED DOSAGE OF 0.5 MG, QHS, PLUSSELF-MEDICATION WITH ADDITIONAL VARIABLE DOSES OF ROPINIROLE
     Route: 065
  2. ROPINIROLE HYDROCHLORIDE (WATSON LABORATORIES) [Suspect]
     Dosage: UNK
     Route: 065
  3. CLONAZEPAM [Concomitant]
     Indication: PERIODIC LIMB MOVEMENT DISORDER
     Dosage: 0.25-0.5 MG AT BEDTIME
     Route: 065

REACTIONS (15)
  - Concomitant disease aggravated [Recovered/Resolved]
  - Food craving [Recovered/Resolved]
  - Weight increased [Recovered/Resolved]
  - Compulsive shopping [Recovered/Resolved]
  - Stereotypy [Recovered/Resolved]
  - Hyperhidrosis [Recovered/Resolved]
  - Fatigue [Recovered/Resolved]
  - Crying [Recovered/Resolved]
  - Dysphoria [Recovered/Resolved]
  - Irritability [Recovered/Resolved]
  - Agitation [Recovered/Resolved]
  - Anxiety [Recovered/Resolved]
  - Insomnia [Recovered/Resolved]
  - Withdrawal syndrome [Recovered/Resolved]
  - Intentional overdose [Recovered/Resolved]
